FAERS Safety Report 20950726 (Version 1)
Quarter: 2022Q2

REPORT INFORMATION
  Report Type: Spontaneous
  Country: US (occurrence: None)
  Receive Date: 20220610
  Receipt Date: 20220610
  Transmission Date: 20220720
  Serious: No
  Sender: FDA-Public Use
  Company Number: None

PATIENT
  Age: 45 Year
  Sex: Female
  Weight: 82.31 kg

DRUGS (3)
  1. GAMUNEX-C [Suspect]
     Active Substance: HUMAN IMMUNOGLOBULIN G
     Indication: Demyelination
     Route: 042
  2. DIPHENHYDRAMINE [Concomitant]
     Active Substance: DIPHENHYDRAMINE
     Route: 042
  3. Acetaminophen 975mg [Concomitant]

REACTIONS (7)
  - Infusion related reaction [None]
  - Headache [None]
  - Pain [None]
  - Nausea [None]
  - Movement disorder [None]
  - Insomnia [None]
  - Therapy interrupted [None]

NARRATIVE: CASE EVENT DATE: 20220607
